FAERS Safety Report 19078778 (Version 6)
Quarter: 2021Q2

REPORT INFORMATION
  Report Type: Report from Study
  Country: US (occurrence: US)
  Receive Date: 20210331
  Receipt Date: 20210622
  Transmission Date: 20210717
  Serious: Yes (Hospitalization, Other)
  Sender: FDA-Public Use
  Company Number: US-TAKEDA-2021TUS019275

PATIENT
  Age: 52 Year
  Sex: Female

DRUGS (20)
  1. TEDUGLUTIDE [Suspect]
     Active Substance: TEDUGLUTIDE
     Dosage: 4.35 MILLIGRAM, QD
     Route: 058
     Dates: start: 20210317
  2. TEDUGLUTIDE [Suspect]
     Active Substance: TEDUGLUTIDE
     Dosage: 0.435 MILLIGRAM
     Route: 065
     Dates: start: 202103
  3. TEDUGLUTIDE [Suspect]
     Active Substance: TEDUGLUTIDE
     Dosage: 0.435 MILLIGRAM
     Route: 065
     Dates: start: 202103
  4. TEDUGLUTIDE [Suspect]
     Active Substance: TEDUGLUTIDE
     Dosage: 4.35 MILLIGRAM, QD
     Route: 058
     Dates: start: 20210317
  5. TEDUGLUTIDE [Suspect]
     Active Substance: TEDUGLUTIDE
     Dosage: 4.35 MILLIGRAM, QD
     Route: 058
     Dates: start: 20210317
  6. TEDUGLUTIDE [Suspect]
     Active Substance: TEDUGLUTIDE
     Dosage: 0.435 MILLIGRAM
     Route: 065
     Dates: start: 202103
  7. TEDUGLUTIDE [Suspect]
     Active Substance: TEDUGLUTIDE
     Dosage: 0.435 MILLIGRAM
     Route: 065
     Dates: start: 202103
  8. TEDUGLUTIDE [Suspect]
     Active Substance: TEDUGLUTIDE
     Dosage: 4.35 MILLIGRAM, QD
     Route: 058
     Dates: start: 202103
  9. TEDUGLUTIDE [Suspect]
     Active Substance: TEDUGLUTIDE
     Dosage: 4.35 MILLIGRAM, QD
     Route: 058
     Dates: start: 202103
  10. TEDUGLUTIDE [Suspect]
     Active Substance: TEDUGLUTIDE
     Dosage: 4.35 MILLIGRAM, QD
     Route: 058
     Dates: start: 202103
  11. TEDUGLUTIDE [Suspect]
     Active Substance: TEDUGLUTIDE
     Dosage: 4.35 MILLIGRAM,QD
     Route: 058
     Dates: start: 20210319
  12. TEDUGLUTIDE [Suspect]
     Active Substance: TEDUGLUTIDE
     Indication: MALABSORPTION
     Dosage: UNK, QD
     Route: 050
  13. TEDUGLUTIDE [Suspect]
     Active Substance: TEDUGLUTIDE
     Indication: MALABSORPTION
     Dosage: UNK, QD
     Route: 050
  14. TEDUGLUTIDE [Suspect]
     Active Substance: TEDUGLUTIDE
     Indication: MALABSORPTION
     Dosage: UNK, QD
     Route: 050
  15. TEDUGLUTIDE [Suspect]
     Active Substance: TEDUGLUTIDE
     Dosage: 4.35 MILLIGRAM, QD
     Route: 058
     Dates: start: 20210317
  16. TEDUGLUTIDE [Suspect]
     Active Substance: TEDUGLUTIDE
     Dosage: 4.35 MILLIGRAM,QD
     Route: 058
     Dates: start: 20210319
  17. TEDUGLUTIDE [Suspect]
     Active Substance: TEDUGLUTIDE
     Indication: MALABSORPTION
     Dosage: UNK, QD
     Route: 050
  18. TEDUGLUTIDE [Suspect]
     Active Substance: TEDUGLUTIDE
     Dosage: 4.35 MILLIGRAM, QD
     Route: 058
     Dates: start: 202103
  19. TEDUGLUTIDE [Suspect]
     Active Substance: TEDUGLUTIDE
     Dosage: 4.35 MILLIGRAM,QD
     Route: 058
     Dates: start: 20210319
  20. TEDUGLUTIDE [Suspect]
     Active Substance: TEDUGLUTIDE
     Dosage: 4.35 MILLIGRAM,QD
     Route: 058
     Dates: start: 20210319

REACTIONS (9)
  - Dehydration [Unknown]
  - Weight increased [Unknown]
  - Therapy cessation [Unknown]
  - Stoma complication [Unknown]
  - Blood potassium decreased [Unknown]
  - Product dose omission issue [Unknown]
  - Blood creatinine decreased [Unknown]
  - Device related thrombosis [Unknown]
  - Urinary tract infection [Unknown]

NARRATIVE: CASE EVENT DATE: 20210320
